FAERS Safety Report 8265555-8 (Version None)
Quarter: 2012Q2

REPORT INFORMATION
  Report Type: 
  Country: None (occurrence: None)
  Receive Date: 20120406
  Receipt Date: 20120328
  Transmission Date: 20120825
  Serious: No
  Sender: FDA-Public Use
  Company Number: US-B.I. PHARMACEUTICALS,INC./RIDGEFIELD-2012-BP-05868BP

PATIENT
  Sex: Female

DRUGS (6)
  1. ASPIRIN [Concomitant]
     Dosage: 81 MG
     Route: 048
  2. BENICAR [Concomitant]
     Indication: HYPERTENSION
     Dosage: 20 MG
     Route: 048
  3. LOVASTATIN [Concomitant]
     Dosage: 20 MG
  4. PRADAXA [Suspect]
     Indication: ATRIAL FIBRILLATION
     Dosage: 300 MG
     Route: 048
     Dates: start: 20110301
  5. DIGOXIN [Concomitant]
     Dosage: 0.125 MG
     Route: 048
  6. TOPROL-XL [Concomitant]
     Indication: HYPERTENSION
     Dosage: 200 MG
     Route: 048

REACTIONS (2)
  - TONGUE INJURY [None]
  - TONGUE HAEMORRHAGE [None]
